FAERS Safety Report 9257453 (Version 2)
Quarter: 2013Q2

REPORT INFORMATION
  Report Type: Spontaneous
  Country: US (occurrence: US)
  Receive Date: 20130426
  Receipt Date: 20130429
  Transmission Date: 20140414
  Serious: Yes (Hospitalization, Other)
  Sender: FDA-Public Use
  Company Number: US-PFIZER INC-2013126722

PATIENT
  Age: 68 Year
  Sex: Male
  Weight: 102.95 kg

DRUGS (3)
  1. DILANTIN [Suspect]
     Indication: CONVULSION
     Dosage: UNK
  2. DILANTIN [Interacting]
     Dosage: TOOK 100MG, 30MG AND 50MG
  3. DILANTIN [Interacting]
     Dosage: 330 MG/DAY (75 MG IN MORNING, 75MG IN AFTERNOON, 30MG IN EVENING, 150MG AT BEDTIME)
     Route: 048
     Dates: start: 1960

REACTIONS (8)
  - Partial seizures [Unknown]
  - Convulsion [Unknown]
  - Dyspnoea [Unknown]
  - Drug interaction [Unknown]
  - Anticonvulsant drug level decreased [Unknown]
  - Drug ineffective [Unknown]
  - Drug level decreased [Unknown]
  - Incorrect product storage [Unknown]
